FAERS Safety Report 8360404-1 (Version None)
Quarter: 2012Q1

REPORT INFORMATION
  Report Type: 
  Country: None (occurrence: None)
  Receive Date: 20120323
  Receipt Date: 20110804
  Transmission Date: 20120608
  Serious: Yes (Other)
  Sender: FDA-Public Use
  Company Number: 163-21880-11042992

PATIENT
  Age: 77 Year
  Sex: Male

DRUGS (6)
  1. PROTONIX [Concomitant]
  2. REVLIMID [Suspect]
     Indication: MULTIPLE MYELOMA
     Dosage: 25 MG, QD X 21 DAYS OFF X 7 DAYS, PO
     Route: 048
     Dates: start: 20110330, end: 20110603
  3. PREDNISONE TAB [Concomitant]
  4. LORTAB [Concomitant]
  5. FLAGYL [Concomitant]
  6. METOPROLOL TARTRATE [Concomitant]

REACTIONS (3)
  - FEELING JITTERY [None]
  - RENAL FAILURE ACUTE [None]
  - TREMOR [None]
